FAERS Safety Report 5292400-5 (Version None)
Quarter: 2007Q2

REPORT INFORMATION
  Report Type: 
  Country: None (occurrence: None)
  Receive Date: 20070410
  Receipt Date: 20070330
  Transmission Date: 20071010
  Serious: Yes (Death)
  Sender: FDA-Public Use
  Company Number: JP-SANOFI-SYNTHELABO-A01200700749

PATIENT
  Sex: Male
  Weight: 50 kg

DRUGS (3)
  1. FLUOROURACIL [Suspect]
     Dosage: 500 MG (340.1 MGM2) IV BOLUS FOLLOWED BY 2500 MG (1700.7 MG/M2) INFUSION ON D1+2
     Route: 042
     Dates: start: 20061122, end: 20061123
  2. OXALIPLATIN [Suspect]
     Indication: RECTAL CANCER
     Route: 042
     Dates: start: 20061122, end: 20061122
  3. LEUCOVORIN CALCIUM [Suspect]
     Route: 042
     Dates: start: 20061122, end: 20061122

REACTIONS (1)
  - INTERSTITIAL LUNG DISEASE [None]
